FAERS Safety Report 7595106-2 (Version None)
Quarter: 2011Q2

REPORT INFORMATION
  Report Type: 
  Country: None (occurrence: None)
  Receive Date: 20110620
  Receipt Date: 20110317
  Transmission Date: 20111010
  Serious: Yes (Hospitalization)
  Sender: FDA-Public Use
  Company Number: UTC-005787

PATIENT
  Age: 66 Year
  Sex: Male

DRUGS (1)
  1. TYVASO [Suspect]
     Dosage: 216 MCG (54 MCG, 4 IN 1 D), INHALATION
     Route: 055
     Dates: start: 20101005

REACTIONS (2)
  - CHILLS [None]
  - PYREXIA [None]
